FAERS Safety Report 6160512-X (Version None)
Quarter: 2009Q2

REPORT INFORMATION
  Report Type: 
  Country: None (occurrence: None)
  Receive Date: 20090415
  Receipt Date: 20090415
  Transmission Date: 20091009
  Serious: Yes (Disabling, Other)
  Sender: FDA-Public Use
  Company Number: None

PATIENT
  Sex: Female
  Weight: 66.6788 kg

DRUGS (4)
  1. NUVARING [Suspect]
     Indication: CONTRACEPTION
     Dosage: 0.120MG/0.015 MG 1 EVERY 3 WEEKS VAG
     Route: 067
     Dates: start: 20090307, end: 20090318
  2. NUVARING [Suspect]
     Indication: MENOPAUSAL SYMPTOMS
     Dosage: 0.120MG/0.015 MG 1 EVERY 3 WEEKS VAG
     Route: 067
     Dates: start: 20090307, end: 20090318
  3. NUVARING [Suspect]
     Indication: CONTRACEPTION
     Dosage: 0.120MG/0.015 MG 1 EVERY 3 WEEKS VAG
     Route: 067
     Dates: start: 20090327, end: 20090405
  4. NUVARING [Suspect]
     Indication: MENOPAUSAL SYMPTOMS
     Dosage: 0.120MG/0.015 MG 1 EVERY 3 WEEKS VAG
     Route: 067
     Dates: start: 20090327, end: 20090405

REACTIONS (8)
  - ACTIVITIES OF DAILY LIVING IMPAIRED [None]
  - FRUSTRATION [None]
  - MOVEMENT DISORDER [None]
  - PAIN [None]
  - TENDERNESS [None]
  - VULVOVAGINAL BURNING SENSATION [None]
  - VULVOVAGINAL DISCOMFORT [None]
  - VULVOVAGINAL PAIN [None]
